FAERS Safety Report 6503181-9 (Version None)
Quarter: 2009Q4

REPORT INFORMATION
  Report Type: 
  Country: None (occurrence: None)
  Receive Date: 20091217
  Receipt Date: 20091209
  Transmission Date: 20100525
  Serious: Yes (Other)
  Sender: FDA-Public Use
  Company Number: US-JNJFOC-20091203719

PATIENT
  Sex: Male
  Weight: 86.18 kg

DRUGS (6)
  1. DURAGESIC-100 [Suspect]
     Indication: BACK PAIN
     Dosage: 100UG/HR + 50UG/HR
  2. DURAGESIC-100 [Suspect]
     Dosage: 100UG/HR (NDC#: 50458-0094-05) +  50UG/HR (NDC#: 50458-0092-05)
     Route: 062
  3. DILAUDID [Concomitant]
     Indication: PAIN
     Route: 037
  4. CLONIDINE [Concomitant]
     Indication: PAIN
     Route: 037
  5. KLONOPIN [Concomitant]
     Indication: MUSCLE SPASMS
     Route: 048
  6. ZANTREX-3 [Concomitant]
     Route: 048

REACTIONS (5)
  - DRUG EFFECT DECREASED [None]
  - HYPOVENTILATION [None]
  - INCORRECT DRUG ADMINISTRATION DURATION [None]
  - OVERDOSE [None]
  - VERTIGO [None]
